FAERS Safety Report 9525373 (Version 1)
Quarter: 2013Q3

REPORT INFORMATION
  Report Type: Spontaneous
  Country: FR (occurrence: FR)
  Receive Date: 20130916
  Receipt Date: 20130916
  Transmission Date: 20140515
  Serious: Yes (Hospitalization)
  Sender: FDA-Public Use
  Company Number: FR-PFIZER INC-2013259516

PATIENT
  Age: 19 Year
  Sex: Female

DRUGS (4)
  1. TYGACIL [Suspect]
     Dosage: 50 MG, DAILY
     Route: 042
     Dates: start: 20100213, end: 20100324
  2. ZECLAR [Suspect]
     Indication: LUNG INFECTION
     Dosage: 500 MG, 2X/DAY
     Route: 048
     Dates: start: 20100220, end: 20100324
  3. VFEND [Concomitant]
  4. AZACTAM [Concomitant]

REACTIONS (1)
  - Hepatitis [Recovered/Resolved]
